FAERS Safety Report 5987513-6 (Version None)
Quarter: 2008Q4

REPORT INFORMATION
  Report Type: 
  Country: None (occurrence: None)
  Receive Date: 20081209
  Receipt Date: 20081128
  Transmission Date: 20090506
  Serious: Yes (Other)
  Sender: FDA-Public Use
  Company Number: GB-TEVA-181463ISR

PATIENT
  Age: 40 Year
  Sex: Female

DRUGS (2)
  1. PACLITAXEL [Suspect]
     Indication: BREAST CANCER METASTATIC
  2. BEVACIZUMAB [Suspect]
     Indication: BREAST CANCER METASTATIC

REACTIONS (1)
  - INTESTINAL ISCHAEMIA [None]
